FAERS Safety Report 26009358 (Version 1)
Quarter: 2025Q4

REPORT INFORMATION
  Report Type: Spontaneous
  Country: JP (occurrence: JP)
  Receive Date: 20251107
  Receipt Date: 20251107
  Transmission Date: 20260118
  Serious: Yes (Hospitalization)
  Sender: MERCK SHARP & DOHME LLC
  Company Number: JP-009507513-2344831

PATIENT
  Age: 83 Year
  Sex: Male
  Weight: 55.2 kg

DRUGS (12)
  1. KEYTRUDA [Suspect]
     Active Substance: PEMBROLIZUMAB
     Indication: Bladder cancer
     Route: 042
     Dates: start: 20221222, end: 20230323
  2. Ursodeoxycholic acid tablets 100 mg [Concomitant]
     Route: 048
  3. Pregabalin od tablets 75 mg [Concomitant]
     Route: 048
  4. Hirudoid cream 0.3% [Concomitant]
     Indication: Dry skin
     Route: 062
  5. Rinderon VG Cream 0.12% [Concomitant]
     Indication: Erythema
     Route: 062
  6. Norvasc tablets 5 mg [Concomitant]
     Route: 048
  7. Lipitor tablets 10 mg [Concomitant]
     Route: 048
  8. Lasix tablets 20 mg [Concomitant]
     Route: 048
  9. Spironolactone tablets 25 mg [Concomitant]
     Route: 048
  10. Urief tablets 4 mg [Concomitant]
     Route: 048
  11. Magnesium oxide tablets 250 mg [Concomitant]
     Route: 048
  12. Juvela N Capsule 100mg [Concomitant]
     Route: 048

REACTIONS (1)
  - Acute kidney injury [Recovered/Resolved]

NARRATIVE: CASE EVENT DATE: 20230509
